FAERS Safety Report 6524919-0 (Version None)
Quarter: 2010Q1

REPORT INFORMATION
  Report Type: 
  Country: None (occurrence: None)
  Receive Date: 20100104
  Receipt Date: 20091221
  Transmission Date: 20100710
  Serious: Yes (Other)
  Sender: FDA-Public Use
  Company Number: GB-PFIZER INC-2007088914

PATIENT
  Age: 36 Year
  Sex: Female

DRUGS (7)
  1. CHAMPIX [Suspect]
     Dosage: 1.5MG
     Route: 048
     Dates: start: 20070912, end: 20070928
  2. ACRIVASTINE [Concomitant]
     Dosage: 8MG
     Route: 048
     Dates: start: 20060101
  3. GABAPENTIN [Concomitant]
     Dosage: 300MG
     Route: 048
     Dates: start: 20070101
  4. MONTELUKAST SODIUM [Concomitant]
     Dosage: 10MG
     Route: 048
     Dates: start: 20060101
  5. TIOTROPIUM BROMIDE [Concomitant]
     Route: 055
  6. THEOPHYLLINE [Concomitant]
     Dosage: 400MG
     Route: 048
     Dates: start: 20060101
  7. VENTOLIN [Concomitant]
     Route: 055
     Dates: start: 20050101

REACTIONS (3)
  - AGGRESSION [None]
  - ANGER [None]
  - MENTAL DISORDER [None]
